FAERS Safety Report 12764445 (Version 1)
Quarter: 2016Q3

REPORT INFORMATION
  Report Type: Spontaneous
  Country: IT (occurrence: IT)
  Receive Date: 20160920
  Receipt Date: 20160920
  Transmission Date: 20161109
  Serious: Yes (Hospitalization)
  Sender: FDA-Public Use
  Company Number: IT-TEVA-693067ACC

PATIENT
  Age: 12 Year
  Sex: Male

DRUGS (3)
  1. OXACILLIN [Suspect]
     Active Substance: OXACILLIN SODIUM
     Indication: BONE ABSCESS
     Dosage: DAILY
     Route: 048
     Dates: start: 20160708, end: 20160727
  2. TRIMETHOPRIM + SULFAMETHOXAZOLE [Suspect]
     Active Substance: SULFAMETHOXAZOLE\TRIMETHOPRIM
     Indication: BONE ABSCESS
     Dosage: 800 MG/KG DAILY
     Route: 048
     Dates: start: 20160811, end: 20160824
  3. LEVOFLOXACIN. [Suspect]
     Active Substance: LEVOFLOXACIN
     Indication: BONE ABSCESS
     Dosage: 500 MG DAILY
     Route: 048
     Dates: start: 20160708, end: 20160727

REACTIONS (6)
  - Arthralgia [Recovered/Resolved]
  - Aphthous ulcer [Recovered/Resolved]
  - Headache [Recovered/Resolved]
  - Rash [Recovered/Resolved]
  - Vomiting [Recovered/Resolved]
  - Pyrexia [Recovered/Resolved]
